FAERS Safety Report 4318308-7 (Version None)
Quarter: 2004Q1

REPORT INFORMATION
  Report Type: 
  Country: None (occurrence: None)
  Receive Date: 20040315
  Receipt Date: 20031205
  Transmission Date: 20041129
  Serious: No
  Sender: FDA-Public Use
  Company Number: 2003189166US

PATIENT
  Age: 72 Year
  Sex: Male
  Weight: 80.7 kg

DRUGS (2)
  1. BEXTRA [Suspect]
     Indication: ARTHRITIS
  2. NORVASC [Concomitant]

REACTIONS (1)
  - URINARY TRACT DISORDER [None]
